FAERS Safety Report 7219146-8 (Version None)
Quarter: 2011Q1

REPORT INFORMATION
  Report Type: 
  Country: None (occurrence: None)
  Receive Date: 20110111
  Receipt Date: 20101230
  Transmission Date: 20110831
  Serious: Yes (Other)
  Sender: FDA-Public Use
  Company Number: US-ELI_LILLY_AND_COMPANY-US201008001508

PATIENT
  Sex: Female

DRUGS (10)
  1. FORTEO [Suspect]
     Dosage: 20 UG, DAILY (1/D)
  2. AMBIEN [Concomitant]
     Dosage: UNK, UNKNOWN
  3. SOMA [Concomitant]
     Dosage: UNK, UNKNOWN
  4. OXYCODONE [Concomitant]
     Dosage: UNK, UNKNOWN
  5. ASCORBIC ACID [Concomitant]
     Dosage: UNK, UNKNOWN
  6. FORTEO [Suspect]
     Dosage: 20 UG, DAILY (1/D)
  7. PRILOSEC [Concomitant]
     Dosage: UNK, UNKNOWN
  8. XANAX [Concomitant]
     Dosage: UNK, UNKNOWN
  9. FORTEO [Suspect]
     Indication: OSTEOPOROSIS
     Dosage: 20 UG, DAILY (1/D)
  10. ZOLOFT [Concomitant]
     Dosage: UNK, UNKNOWN

REACTIONS (19)
  - EATING DISORDER [None]
  - RED BLOOD CELL COUNT INCREASED [None]
  - MOVEMENT DISORDER [None]
  - BACK PAIN [None]
  - MALAISE [None]
  - MEDICATION ERROR [None]
  - SURGERY [None]
  - CLOSTRIDIAL INFECTION [None]
  - NAUSEA [None]
  - GAIT DISTURBANCE [None]
  - PAIN [None]
  - VISUAL ACUITY REDUCED [None]
  - INJECTION SITE HAEMATOMA [None]
  - DYSSTASIA [None]
  - INSOMNIA [None]
  - APPETITE DISORDER [None]
  - FALL [None]
  - LOSS OF CONSCIOUSNESS [None]
  - FOOD CRAVING [None]
